FAERS Safety Report 9057284 (Version 1)
Quarter: 2013Q1

REPORT INFORMATION
  Report Type: Report from Study
  Country: JP (occurrence: JP)
  Receive Date: 20130131
  Receipt Date: 20130131
  Transmission Date: 20140127
  Serious: Yes (Other)
  Sender: FDA-Public Use
  Company Number: JP-GLAXOSMITHKLINE-B0860472A

PATIENT
  Age: 37 None
  Sex: Female
  Weight: 53 kg

DRUGS (5)
  1. TYKERB [Suspect]
     Indication: BREAST CANCER
     Route: 048
     Dates: start: 20090620, end: 20090708
  2. TYKERB [Suspect]
     Indication: BREAST CANCER
     Route: 048
     Dates: start: 20090718, end: 20090918
  3. XELODA [Concomitant]
     Indication: BREAST CANCER
     Route: 048
     Dates: start: 20090620, end: 20090708
  4. XELODA [Concomitant]
     Indication: BREAST CANCER
     Route: 048
     Dates: start: 20090718, end: 20090828
  5. XELODA [Concomitant]
     Indication: BREAST CANCER
     Route: 048
     Dates: start: 20090829, end: 20090918

REACTIONS (4)
  - Cellulitis [Recovering/Resolving]
  - Diarrhoea [Recovered/Resolved]
  - Pyrexia [Recovered/Resolved]
  - Erythema [Recovering/Resolving]
